FAERS Safety Report 9179470 (Version 1)
Quarter: 2013Q1

REPORT INFORMATION
  Report Type: Spontaneous
  Country: FR (occurrence: FR)
  Receive Date: 20130321
  Receipt Date: 20130321
  Transmission Date: 20140127
  Serious: Yes (Hospitalization)
  Sender: FDA-Public Use
  Company Number: FR-ROCHE-1203137

PATIENT
  Age: 71 Year
  Sex: Female

DRUGS (2)
  1. LUCENTIS [Suspect]
     Indication: PRODUCT USED FOR UNKNOWN INDICATION
     Dosage: 10 MG/ML
     Route: 050
     Dates: start: 201006
  2. LUCENTIS [Suspect]
     Route: 050
     Dates: start: 20110210

REACTIONS (3)
  - Bicytopenia [Not Recovered/Not Resolved]
  - Thrombocytopenia [Not Recovered/Not Resolved]
  - Anaemia [Not Recovered/Not Resolved]
